FAERS Safety Report 5876171-7 (Version None)
Quarter: 2008Q3

REPORT INFORMATION
  Report Type: 
  Country: None (occurrence: None)
  Receive Date: 20080908
  Receipt Date: 20080828
  Transmission Date: 20090109
  Serious: Yes (Hospitalization)
  Sender: FDA-Public Use
  Company Number: TPA2008A01374

PATIENT
  Age: 63 Year
  Sex: Male
  Weight: 117.9352 kg

DRUGS (4)
  1. ACTOS [Suspect]
     Indication: TYPE 2 DIABETES MELLITUS
     Dosage: PER ORAL
     Route: 048
     Dates: start: 20060101
  2. BLOOD THINNER (OTHER HAEMATOLOGICAL AGENTS) [Concomitant]
  3. BETA BLOCKER (BETA BLOCKING AGENTS) [Concomitant]
  4. SYNTHROID [Concomitant]

REACTIONS (1)
  - ANKLE FRACTURE [None]
